FAERS Safety Report 6697746-1 (Version None)
Quarter: 2010Q2

REPORT INFORMATION
  Report Type: 
  Country: None (occurrence: None)
  Receive Date: 20100423
  Receipt Date: 20100414
  Transmission Date: 20101027
  Serious: Yes (Hospitalization)
  Sender: FDA-Public Use
  Company Number: SPV1-2010-00732

PATIENT
  Sex: Male
  Weight: 40.8 kg

DRUGS (1)
  1. ADDERALL 12.5 [Suspect]
     Indication: ATTENTION DEFICIT/HYPERACTIVITY DISORDER
     Dates: start: 20070101, end: 20090101

REACTIONS (2)
  - ARACHNOID CYST [None]
  - HEADACHE [None]
